FAERS Safety Report 6914434-4 (Version None)
Quarter: 2010Q3

REPORT INFORMATION
  Report Type: 
  Country: None (occurrence: None)
  Receive Date: 20100809
  Receipt Date: 20100729
  Transmission Date: 20110219
  Serious: Yes (Other)
  Sender: FDA-Public Use
  Company Number: FI-PFIZER INC-2010095626

PATIENT
  Age: 35 Year
  Sex: Female

DRUGS (1)
  1. DOSTINEX [Suspect]
     Indication: LACTATION INHIBITION THERAPY
     Dosage: 0.5 MG, 2X/DAY
     Dates: start: 20100701, end: 20100701

REACTIONS (4)
  - BLINDNESS TRANSIENT [None]
  - MYALGIA [None]
  - PYREXIA [None]
  - VERTIGO [None]
